FAERS Safety Report 10247759 (Version 3)
Quarter: 2014Q3

REPORT INFORMATION
  Report Type: Report from Study
  Country: FR (occurrence: FR)
  Receive Date: 20140619
  Receipt Date: 20140916
  Transmission Date: 20150326
  Serious: Yes (Hospitalization)
  Sender: FDA-Public Use
  Company Number: PHHY2014FR075806

PATIENT
  Age: 52 Year
  Sex: Female

DRUGS (2)
  1. CERIS [Concomitant]
     Active Substance: TROSPIUM CHLORIDE
     Indication: POLLAKIURIA
     Dosage: 20 MG, QD
     Dates: start: 201309
  2. GILENYA [Suspect]
     Active Substance: FINGOLIMOD HYDROCHLORIDE
     Indication: MULTIPLE SCLEROSIS
     Dosage: 1 DF, QD
     Route: 048
     Dates: start: 20140604, end: 20140612

REACTIONS (7)
  - Pyrexia [Recovered/Resolved]
  - Vomiting [Recovered/Resolved]
  - Lymphopenia [Unknown]
  - Transaminases increased [Unknown]
  - Malaise [Recovered/Resolved]
  - Abdominal pain [Unknown]
  - Diarrhoea [Recovered/Resolved]

NARRATIVE: CASE EVENT DATE: 20140612
